FAERS Safety Report 9168668 (Version 1)
Quarter: 2013Q1

REPORT INFORMATION
  Report Type: Spontaneous
  Country: ES (occurrence: ES)
  Receive Date: 20130318
  Receipt Date: 20130318
  Transmission Date: 20140127
  Serious: Yes (Life-Threatening, Other)
  Sender: FDA-Public Use
  Company Number: ES-ASTRAZENECA-2013SE10087

PATIENT
  Age: 731 Month
  Sex: Female
  Weight: 58.5 kg

DRUGS (2)
  1. CRESTOR [Suspect]
     Indication: HYPERCHOLESTEROLAEMIA
     Route: 048
     Dates: start: 2008, end: 2013
  2. OTHER STATINS [Concomitant]

REACTIONS (2)
  - Tachycardia [Recovered/Resolved]
  - Dyspnoea exertional [Recovered/Resolved]
